FAERS Safety Report 6637191-8 (Version None)
Quarter: 2010Q1

REPORT INFORMATION
  Report Type: 
  Country: None (occurrence: None)
  Receive Date: 20100310
  Receipt Date: 20100225
  Transmission Date: 20100710
  Serious: Yes (Hospitalization)
  Sender: FDA-Public Use
  Company Number: 008160

PATIENT
  Age: 38 Year
  Sex: Female
  Weight: 61 kg

DRUGS (3)
  1. KEPPRA [Suspect]
     Dosage: 1000 MG BID)
  2. FORTECORTIN /00016001/ [Concomitant]
  3. TEMODAL [Concomitant]

REACTIONS (1)
  - TYPE I HYPERSENSITIVITY [None]
